FAERS Safety Report 22526206 (Version 1)
Quarter: 2023Q2

REPORT INFORMATION
  Report Type: Spontaneous
  Country: CN (occurrence: CN)
  Receive Date: 20230606
  Receipt Date: 20230606
  Transmission Date: 20230722
  Serious: Yes (Other)
  Sender: FDA-Public Use
  Company Number: None

PATIENT
  Age: 34 Year
  Sex: Female
  Weight: 49 kg

DRUGS (7)
  1. CYCLOPHOSPHAMIDE [Suspect]
     Active Substance: CYCLOPHOSPHAMIDE
     Indication: Chemotherapy
     Dosage: 1800 MG, QD, DILUTED WITH 500 ML SODIUM CHLORIDE, SECOND CYCLE
     Route: 041
     Dates: start: 20221223, end: 20221223
  2. CYCLOPHOSPHAMIDE [Suspect]
     Active Substance: CYCLOPHOSPHAMIDE
     Indication: Endometrial stromal sarcoma
  3. SODIUM CHLORIDE [Suspect]
     Active Substance: SODIUM CHLORIDE
     Indication: Medication dilution
     Dosage: 500 ML, QD, USED TO DILUTE 1800 MG CYCLOPHOSPHAMIDE, SECOND CYCLE
     Route: 041
     Dates: start: 20221223, end: 20221223
  4. DEXTROSE [Suspect]
     Active Substance: DEXTROSE\DEXTROSE MONOHYDRATE
     Indication: Medication dilution
     Dosage: 250 ML, QD, USED TO DILUTE 60 MG DOXORUBICIN HYDROCHLORIDE LIPOSOME, SECOND CYCLE
     Route: 041
     Dates: start: 20221223, end: 20221223
  5. DOXORUBICIN HYDROCHLORIDE [Suspect]
     Active Substance: DOXORUBICIN HYDROCHLORIDE
     Indication: Chemotherapy
     Dosage: 60 MG, QD, DILUTED WITH 5% OF 250 ML GLUCOSE SOLUTION, SECOND CYCLE
     Route: 041
     Dates: start: 20221223, end: 20221223
  6. DOXORUBICIN HYDROCHLORIDE [Suspect]
     Active Substance: DOXORUBICIN HYDROCHLORIDE
     Indication: Endometrial stromal sarcoma
  7. AI DUO [Concomitant]
     Dosage: 6 MG, START DATE: DEC2023
     Route: 058

REACTIONS (2)
  - White blood cell count decreased [Recovered/Resolved]
  - Agranulocytosis [Recovered/Resolved]

NARRATIVE: CASE EVENT DATE: 20221228
